FAERS Safety Report 14744721 (Version 1)
Quarter: 2018Q2

REPORT INFORMATION
  Report Type: Report from Study
  Country: US (occurrence: US)
  Receive Date: 20180411
  Receipt Date: 20180411
  Transmission Date: 20180711
  Serious: Yes (Death, Other)
  Sender: FDA-Public Use
  Company Number: US-GILEAD-2018-0331947

PATIENT
  Age: 74 Year
  Sex: Female

DRUGS (18)
  1. DORZOLAMIDE [Concomitant]
     Active Substance: DORZOLAMIDE
  2. NAPROXEN. [Concomitant]
     Active Substance: NAPROXEN
  3. VITAMIN E                          /00110501/ [Concomitant]
     Active Substance: TOCOPHEROL
  4. MAGNESIUM [Concomitant]
     Active Substance: MAGNESIUM
  5. AMBRISENTAN [Suspect]
     Active Substance: AMBRISENTAN
     Indication: PULMONARY HYPERTENSION
     Dosage: 10 MG, QD
     Route: 065
     Dates: start: 20150623
  6. ADCIRCA [Concomitant]
     Active Substance: TADALAFIL
  7. LOSARTAN. [Concomitant]
     Active Substance: LOSARTAN
  8. CARVEDILOL. [Concomitant]
     Active Substance: CARVEDILOL
  9. FUROSEMIDE. [Concomitant]
     Active Substance: FUROSEMIDE
  10. LATANOPROST. [Concomitant]
     Active Substance: LATANOPROST
  11. IRON [Concomitant]
     Active Substance: IRON
  12. DICLOFENAC [Concomitant]
     Active Substance: DICLOFENAC
  13. LIOTHYRONINE [Concomitant]
     Active Substance: LIOTHYRONINE
  14. METFORMIN [Concomitant]
     Active Substance: METFORMIN HYDROCHLORIDE
  15. SIMVASTATIN. [Concomitant]
     Active Substance: SIMVASTATIN
  16. CYCLOBENZAPRINE. [Concomitant]
     Active Substance: CYCLOBENZAPRINE
  17. OXYGEN. [Concomitant]
     Active Substance: OXYGEN
  18. WARFARIN [Concomitant]
     Active Substance: WARFARIN

REACTIONS (1)
  - Death [Fatal]

NARRATIVE: CASE EVENT DATE: 20180408
